FAERS Safety Report 4721260-3 (Version None)
Quarter: 2005Q3

REPORT INFORMATION
  Report Type: 
  Country: None (occurrence: None)
  Receive Date: 20050720
  Receipt Date: 20050706
  Transmission Date: 20060218
  Serious: No
  Sender: FDA-Public Use
  Company Number: 2005FR-00117

PATIENT
  Age: 22 Year
  Sex: Female
  Weight: 65 kg

DRUGS (15)
  1. RANITIDINE [Suspect]
     Dosage: 300 MG, ORAL
     Route: 048
  2. REMIFENTANIL [Concomitant]
  3. METOCLOPRAMIDE [Concomitant]
  4. SUXAMETHONIUM [Concomitant]
  5. SODIUM CITRATE [Concomitant]
  6. ETOMIDATE [Concomitant]
  7. ISOFLURANE [Concomitant]
  8. NITROUS OXIDE [Concomitant]
  9. OXYGEN [Concomitant]
  10. GLYCOPYRRONIUM BROMIDE [Concomitant]
  11. DICLOFENAC SODIUM [Concomitant]
  12. GENTAMICIN [Concomitant]
  13. CEFUROXIME [Concomitant]
  14. OXYTOCIN [Concomitant]
  15. METARAMINOL [Concomitant]

REACTIONS (3)
  - CAESAREAN SECTION [None]
  - DRUG EXPOSURE DURING PREGNANCY [None]
  - OPERATIVE HAEMORRHAGE [None]
